FAERS Safety Report 25635329 (Version 1)
Quarter: 2025Q3

REPORT INFORMATION
  Report Type: Spontaneous
  Country: US (occurrence: US)
  Receive Date: 20250802
  Receipt Date: 20250802
  Transmission Date: 20251021
  Serious: Yes (Death)
  Sender: NOVITIUM PHARMA
  Company Number: US-NOVITIUMPHARMA-2025USNVP01855

PATIENT
  Age: 78 Year
  Sex: Female

DRUGS (2)
  1. PREDNISONE [Suspect]
     Active Substance: PREDNISONE
     Indication: Pneumonitis
     Route: 048
  2. EVEROLIMUS [Concomitant]
     Active Substance: EVEROLIMUS
     Indication: Carcinoid tumour pulmonary

REACTIONS (1)
  - Drug ineffective [Fatal]
